FAERS Safety Report 25051186 (Version 1)
Quarter: 2025Q1

REPORT INFORMATION
  Report Type: Spontaneous
  Country: US (occurrence: US)
  Receive Date: 20250307
  Receipt Date: 20250307
  Transmission Date: 20250408
  Serious: No
  Sender: MYLAN
  Company Number: US-MYLANLABS-2025M1008084

PATIENT
  Sex: Female

DRUGS (1)
  1. LEVOTHYROXINE SODIUM [Suspect]
     Active Substance: LEVOTHYROXINE SODIUM
     Indication: Product used for unknown indication
     Dosage: 112 MICROGRAM, 5XW (FIVE PER WEEK)

REACTIONS (3)
  - Adverse event [Unknown]
  - Blood thyroid stimulating hormone decreased [Unknown]
  - Blood thyroid stimulating hormone increased [Unknown]
